FAERS Safety Report 17766230 (Version 4)
Quarter: 2020Q4

REPORT INFORMATION
  Report Type: Report from Study
  Country: GT (occurrence: GT)
  Receive Date: 20200511
  Receipt Date: 20201009
  Transmission Date: 20210113
  Serious: Yes (Life-Threatening, Other)
  Sender: FDA-Public Use
  Company Number: NVSC2020GT126977

PATIENT
  Sex: Male

DRUGS (1)
  1. GILENYA [Suspect]
     Active Substance: FINGOLIMOD HYDROCHLORIDE
     Indication: MULTIPLE SCLEROSIS
     Dosage: 0.5 MG, QD
     Route: 048
     Dates: start: 20191127

REACTIONS (18)
  - Dizziness [Unknown]
  - Fear [Unknown]
  - Cold sweat [Unknown]
  - Hypotension [Unknown]
  - Drug ineffective [Unknown]
  - Balance disorder [Unknown]
  - Pallor [Unknown]
  - Heat illness [Unknown]
  - Oedema peripheral [Unknown]
  - Malaise [Unknown]
  - Panic attack [Unknown]
  - Multiple sclerosis relapse [Unknown]
  - Hypoaesthesia [Unknown]
  - Vision blurred [Unknown]
  - Dyspnoea [Unknown]
  - Gait disturbance [Unknown]
  - Muscular weakness [Unknown]
  - Eye irritation [Unknown]
